FAERS Safety Report 7645714-5 (Version None)
Quarter: 2011Q3

REPORT INFORMATION
  Report Type: 
  Country: None (occurrence: None)
  Receive Date: 20110729
  Receipt Date: 20110726
  Transmission Date: 20111222
  Serious: No
  Sender: FDA-Public Use
  Company Number: US-PFIZER INC-2011170753

PATIENT
  Sex: Male

DRUGS (3)
  1. XANAX [Suspect]
     Indication: ANXIETY
     Dosage: AS NEEDED
     Dates: start: 20110601
  2. REVLIMID [Concomitant]
     Indication: MULTIPLE MYELOMA
     Dosage: 10 MG, DAILY
     Route: 048
     Dates: start: 20100101, end: 20100702
  3. REVLIMID [Concomitant]
     Dosage: 10 MG, DAILY
     Route: 048
     Dates: start: 20110406

REACTIONS (2)
  - LETHARGY [None]
  - SOMNOLENCE [None]
